FAERS Safety Report 23060180 (Version 3)
Quarter: 2024Q1

REPORT INFORMATION
  Report Type: Spontaneous
  Country: JP (occurrence: JP)
  Receive Date: 20231012
  Receipt Date: 20240115
  Transmission Date: 20240410
  Serious: Yes (Life-Threatening, Hospitalization, Other)
  Sender: FDA-Public Use
  Company Number: JP-AMGEN-JPNSP2023128534

PATIENT
  Age: 83 Year
  Sex: Female
  Weight: 55 kg

DRUGS (11)
  1. EVENITY [Suspect]
     Active Substance: ROMOSOZUMAB-AQQG
     Indication: Osteoporosis
     Dosage: 210 MILLIGRAM, QMO
     Route: 058
     Dates: start: 20200312, end: 20201229
  2. EVENITY [Suspect]
     Active Substance: ROMOSOZUMAB-AQQG
  3. DENOSUMAB [Suspect]
     Active Substance: DENOSUMAB
     Indication: Osteoporosis
     Dosage: UNK
     Route: 065
     Dates: start: 20180906, end: 20200312
  4. DENOSUMAB [Suspect]
     Active Substance: DENOSUMAB
     Dosage: UNK
     Route: 065
     Dates: start: 20210316
  5. BISOPROLOL [Concomitant]
     Active Substance: BISOPROLOL\BISOPROLOL FUMARATE
     Dosage: 4 MILLIGRAM (1 TAPE), QD
  6. ASPIRIN [Concomitant]
     Active Substance: ASPIRIN
     Dosage: 100 MILLIGRAM, QD
  7. PRASUGREL HYDROCHLORIDE [Concomitant]
     Active Substance: PRASUGREL HYDROCHLORIDE
     Dosage: 3.75 MILLIGRAM, QD
  8. VONOPRAZAN FUMARATE [Concomitant]
     Active Substance: VONOPRAZAN FUMARATE
     Dosage: 20 MILLIGRAM, 0.5 TABLET ONCE DAILY AFTER BREAKFAST
  9. PITAVASTATIN [Concomitant]
     Active Substance: PITAVASTATIN
     Dosage: 4 MILLIGRAM, QD
  10. ROCALTROL [Concomitant]
     Active Substance: CALCITRIOL
     Dosage: 0.25, 1 CAPSULE ONCE DAILY AFTER BREAKFAST
  11. AMLODIPINE [Concomitant]
     Active Substance: AMLODIPINE BESYLATE
     Indication: Hypertension
     Dosage: 2.5 MILLIGRAM
     Dates: end: 20210111

REACTIONS (6)
  - Acute myocardial infarction [Recovered/Resolved]
  - Atrial fibrillation [Recovered/Resolved]
  - Blood pressure decreased [Recovered/Resolved]
  - Vascular pseudoaneurysm thrombosis [Recovered/Resolved]
  - Dementia [Unknown]
  - Delirium [Unknown]

NARRATIVE: CASE EVENT DATE: 20210110
